FAERS Safety Report 15028083 (Version 2)
Quarter: 2018Q3

REPORT INFORMATION
  Report Type: Spontaneous
  Country: US (occurrence: US)
  Receive Date: 20180619
  Receipt Date: 20180702
  Transmission Date: 20181010
  Serious: Yes (Other)
  Sender: FDA-Public Use
  Company Number: US-WEST-WARD PHARMACEUTICALS CORP.-US-H14001-18-01895

PATIENT
  Age: 29 Year
  Sex: Female
  Weight: 69.5 kg

DRUGS (4)
  1. HYDROMORPHONE [Suspect]
     Active Substance: HYDROMORPHONE
     Indication: RESPIRATORY DEPRESSION
     Route: 042
     Dates: start: 20180216, end: 20180216
  2. HYDROMORPHONE [Suspect]
     Active Substance: HYDROMORPHONE
     Route: 042
     Dates: start: 20180217, end: 20180217
  3. PRENATAL VITAMINS [Concomitant]
     Active Substance: VITAMINS
     Indication: PREGNANCY
     Route: 048
     Dates: start: 20180222, end: 20180517
  4. NALOXONE [Suspect]
     Active Substance: NALOXONE
     Indication: DRUG DEPENDENCE
     Route: 058
     Dates: start: 20180215, end: 20180215

REACTIONS (3)
  - Off label use [Recovered/Resolved]
  - Abortion spontaneous [Recovered/Resolved]
  - Maternal exposure during pregnancy [Recovered/Resolved]

NARRATIVE: CASE EVENT DATE: 20180216
